FAERS Safety Report 10965080 (Version 2)
Quarter: 2015Q2

REPORT INFORMATION
  Report Type: Spontaneous
  Country: US (occurrence: US)
  Receive Date: 20150330
  Receipt Date: 20150505
  Transmission Date: 20150821
  Serious: Yes (Other)
  Sender: FDA-Public Use
  Company Number: US-AUROBINDO-AUR-APU-2015-02724

PATIENT
  Sex: Female

DRUGS (1)
  1. GABAPENTIN CAPSULES 300 MG [Suspect]
     Active Substance: GABAPENTIN
     Indication: PRODUCT USED FOR UNKNOWN INDICATION
     Dosage: 3 DF, DAILY
     Route: 065

REACTIONS (5)
  - Product taste abnormal [Unknown]
  - Product quality issue [Unknown]
  - Retching [Unknown]
  - Product odour abnormal [Unknown]
  - Product substitution issue [Unknown]
